FAERS Safety Report 10424810 (Version 3)
Quarter: 2014Q3

REPORT INFORMATION
  Report Type: Report from Study
  Country: TR (occurrence: TR)
  Receive Date: 20140902
  Receipt Date: 20140902
  Transmission Date: 20150326
  Serious: Yes (Hospitalization)
  Sender: FDA-Public Use
  Company Number: TR-TEVA-468110USA

PATIENT
  Age: 57 Year
  Sex: Male
  Weight: 67.5 kg

DRUGS (11)
  1. PLATELETS [Concomitant]
     Active Substance: HUMAN PLATELET, ALLOGENIC
     Indication: THROMBOCYTOPENIA
     Dosage: UNKNOWN/D
     Route: 065
     Dates: start: 20140219
  2. BLOOD AND RELATED PRODUCTS [Concomitant]
     Active Substance: HUMAN BLOOD CELLS
     Indication: THROMBOCYTOPENIA
     Dosage: POOLED THROMBOCYTE
     Route: 065
     Dates: start: 20140224
  3. BLOOD AND RELATED PRODUCTS [Concomitant]
     Active Substance: HUMAN BLOOD CELLS
     Indication: ANAEMIA
     Dosage: ERYTHROCYTE SUSPENSION; UNKNOWN/D
     Route: 065
     Dates: start: 20140224
  4. PLACEBO [Suspect]
     Active Substance: UNSPECIFIED INGREDIENT
     Indication: CHRONIC LYMPHOCYTIC LEUKAEMIA
     Route: 048
     Dates: start: 20131227
  5. PLACEBO [Suspect]
     Active Substance: UNSPECIFIED INGREDIENT
     Indication: LYMPHOCYTIC LEUKAEMIA
     Route: 048
     Dates: start: 20131227
  6. BLOOD AND RELATED PRODUCTS [Concomitant]
     Active Substance: HUMAN BLOOD CELLS
     Indication: ANAEMIA
     Dosage: ERYTHROCYTE SUSPENSION; UNKNOWN/D
     Route: 065
     Dates: start: 20140223
  7. BENDAMUSTINE [Suspect]
     Active Substance: BENDAMUSTINE
     Indication: CHRONIC LYMPHOCYTIC LEUKAEMIA
     Dosage: FREQUENCY: ONCE IN EVERY 28 DAYS; CYCLIC
     Route: 042
     Dates: start: 20131227
  8. RITUXIMAB [Suspect]
     Active Substance: RITUXIMAB
     Indication: LYMPHOCYTIC LEUKAEMIA
     Dosage: FREQUENCY: ONCE IN EVERY 28 DAYS; CYCLIC
     Route: 042
     Dates: start: 20131226, end: 20140310
  9. BENDAMUSTINE [Suspect]
     Active Substance: BENDAMUSTINE
     Indication: LYMPHOCYTIC LEUKAEMIA
     Dosage: FREQUENCY: ONCE IN EVERY 28 DAYS; CYCLIC
     Route: 042
     Dates: start: 20131227
  10. RITUXIMAB [Suspect]
     Active Substance: RITUXIMAB
     Indication: CHRONIC LYMPHOCYTIC LEUKAEMIA
     Dosage: FREQUENCY: ONCE IN EVERY 28 DAYS; CYCLIC
     Route: 042
     Dates: start: 20131226
  11. BLOOD AND RELATED PRODUCTS [Concomitant]
     Active Substance: HUMAN BLOOD CELLS
     Indication: ANAEMIA
     Dosage: ERYTHROCYTE SUSPENSION
     Route: 065
     Dates: start: 20140219

REACTIONS (1)
  - Autoimmune haemolytic anaemia [Recovered/Resolved]

NARRATIVE: CASE EVENT DATE: 20140226
